FAERS Safety Report 23589136 (Version 2)
Quarter: 2024Q1

REPORT INFORMATION
  Report Type: Report from Study
  Country: US (occurrence: US)
  Receive Date: 20240303
  Receipt Date: 20240313
  Transmission Date: 20240410
  Serious: No
  Sender: FDA-Public Use
  Company Number: US-ABBVIE-5659403

PATIENT
  Age: 76 Year
  Sex: Female

DRUGS (2)
  1. SKYRIZI [Suspect]
     Active Substance: RISANKIZUMAB-RZAA
     Indication: Crohn^s disease
     Dosage: LAST ADMIN DATE: 2023
     Route: 058
     Dates: start: 202310
  2. SKYRIZI [Suspect]
     Active Substance: RISANKIZUMAB-RZAA
     Route: 058
     Dates: start: 20231105

REACTIONS (7)
  - Dizziness [Not Recovered/Not Resolved]
  - COVID-19 [Unknown]
  - Sinusitis [Not Recovered/Not Resolved]
  - Skin mass [Not Recovered/Not Resolved]
  - Head discomfort [Unknown]
  - Ear infection [Unknown]
  - Malaise [Unknown]

NARRATIVE: CASE EVENT DATE: 20231001
